FAERS Safety Report 4340757-1 (Version None)
Quarter: 2004Q2

REPORT INFORMATION
  Report Type: 
  Country: None (occurrence: None)
  Receive Date: 20040413
  Receipt Date: 20040402
  Transmission Date: 20050107
  Serious: Yes (Hospitalization)
  Sender: FDA-Public Use
  Company Number: 2004023367

PATIENT
  Age: 24 Year
  Sex: Male

DRUGS (2)
  1. SUDAFED 12 HOUR [Suspect]
     Dosage: UNSPECIFIED, ORAL
     Route: 048
     Dates: start: 20031222, end: 20031225
  2. CLARITHROMYCIN [Suspect]
     Indication: PNEUMONIA
     Dosage: 2 TB 500 MG A DAY ORAL
     Route: 048
     Dates: start: 20031222, end: 20031227

REACTIONS (10)
  - ANXIETY [None]
  - DEHYDRATION [None]
  - DELUSION [None]
  - DYSPNOEA [None]
  - EUPHORIC MOOD [None]
  - FEAR [None]
  - FEELING ABNORMAL [None]
  - INSOMNIA [None]
  - MENTAL STATUS CHANGES [None]
  - PSYCHOTIC DISORDER [None]
